FAERS Safety Report 8343093-1 (Version None)
Quarter: 2012Q2

REPORT INFORMATION
  Report Type: 
  Country: None (occurrence: None)
  Receive Date: 20120508
  Receipt Date: 20120430
  Transmission Date: 20120825
  Serious: Yes (Hospitalization)
  Sender: FDA-Public Use
  Company Number: KR-ASTELLAS-2012US004420

PATIENT
  Sex: Male
  Weight: 57 kg

DRUGS (3)
  1. ERLOTINIB HYDROCHLORIDE [Suspect]
     Indication: NON-SMALL CELL LUNG CANCER
     Dosage: 150 MG, UID/QD
     Route: 048
     Dates: start: 20111109
  2. MEGESTROL ACETATE [Concomitant]
     Indication: PRODUCT USED FOR UNKNOWN INDICATION
     Dosage: 20 ML, UNKNOWN/D
     Route: 065
     Dates: start: 20110228, end: 20120428
  3. HYDROMORPHONE HCL [Concomitant]
     Indication: PRODUCT USED FOR UNKNOWN INDICATION
     Dosage: 4 MG, UNKNOWN/D
     Route: 065
     Dates: start: 20111213, end: 20120424

REACTIONS (1)
  - PULMONARY EMBOLISM [None]
